FAERS Safety Report 11692187 (Version 1)
Quarter: 2015Q4

REPORT INFORMATION
  Report Type: Spontaneous
  Country: US (occurrence: US)
  Receive Date: 20151103
  Receipt Date: 20151103
  Transmission Date: 20160304
  Serious: Yes (Hospitalization)
  Sender: FDA-Public Use
  Company Number: US-ALKEM-001302

PATIENT
  Age: 8 Year
  Sex: Male

DRUGS (3)
  1. OXCARBAZEPINE. [Interacting]
     Active Substance: OXCARBAZEPINE
     Indication: AUTISM SPECTRUM DISORDER
  2. CLONIDINE. [Concomitant]
     Active Substance: CLONIDINE
     Indication: AUTISM SPECTRUM DISORDER
  3. QUETIAPINE/QUETIAPINE FUMARATE [Suspect]
     Active Substance: QUETIAPINE FUMARATE
     Indication: AUTISM SPECTRUM DISORDER
     Dosage: RECEIVED 200 MG EVERY MORNING, 200 MG AT NOON, AND 300 MG AT BEDTIME.

REACTIONS (4)
  - Off label use [Unknown]
  - Aggression [Recovered/Resolved]
  - Drug interaction [Unknown]
  - Drug level decreased [Recovered/Resolved]
